FAERS Safety Report 5946831-8 (Version None)
Quarter: 2008Q4

REPORT INFORMATION
  Report Type: 
  Country: None (occurrence: None)
  Receive Date: 20081110
  Receipt Date: 20081031
  Transmission Date: 20090506
  Serious: Yes (Hospitalization)
  Sender: FDA-Public Use
  Company Number: US-CELGENEUS-163-21880-08110061

PATIENT
  Sex: Female

DRUGS (2)
  1. REVLIMID [Suspect]
     Route: 048
     Dates: start: 20081001, end: 20081004
  2. REVLIMID [Suspect]
     Route: 048
     Dates: start: 20081103

REACTIONS (2)
  - FAECALOMA [None]
  - INTRA-ABDOMINAL HAEMORRHAGE [None]
